FAERS Safety Report 8029299-X (Version None)
Quarter: 2012Q1

REPORT INFORMATION
  Report Type: 
  Country: None (occurrence: None)
  Receive Date: 20120106
  Receipt Date: 20120104
  Transmission Date: 20120608
  Serious: Yes (Death, Other)
  Sender: FDA-Public Use
  Company Number: US-GILEAD-2011-0048397

PATIENT
  Sex: Male

DRUGS (1)
  1. LETAIRIS [Suspect]
     Indication: PULMONARY HYPERTENSION
     Dosage: 10 MG, UNK
     Route: 048
     Dates: end: 20111120

REACTIONS (9)
  - RESPIRATORY FAILURE [None]
  - CARDIOMEGALY [None]
  - PULMONARY FIBROSIS [None]
  - CYANOSIS [None]
  - PULMONARY ARTERIAL HYPERTENSION [None]
  - OXYGEN SATURATION ABNORMAL [None]
  - CLUBBING [None]
  - LUNG NEOPLASM MALIGNANT [None]
  - CARDIAC DISORDER [None]
